FAERS Safety Report 14864388 (Version 1)
Quarter: 2018Q2

REPORT INFORMATION
  Report Type: Spontaneous
  Country: US (occurrence: US)
  Receive Date: 20180508
  Receipt Date: 20180508
  Transmission Date: 20180711
  Serious: No
  Sender: FDA-Public Use
  Company Number: US-ALKERMES INC.-ALK-2017-003982

PATIENT
  Sex: Female

DRUGS (2)
  1. VIVITROL [Suspect]
     Active Substance: NALTREXONE
     Indication: DRUG DEPENDENCE
     Dosage: 380 MG, QMO
     Route: 030
     Dates: start: 20170914
  2. IRON [Concomitant]
     Active Substance: IRON
     Indication: PRODUCT USED FOR UNKNOWN INDICATION

REACTIONS (11)
  - Tremor [Unknown]
  - Thrombosis [Unknown]
  - Vomiting [Unknown]
  - Piloerection [Unknown]
  - Hyperhidrosis [Unknown]
  - Swollen tongue [Unknown]
  - Arthralgia [Unknown]
  - Nausea [Unknown]
  - Drug dependence [Unknown]
  - Choking sensation [Unknown]
  - Decreased appetite [Unknown]

NARRATIVE: CASE EVENT DATE: 201709
